FAERS Safety Report 4544247-2 (Version None)
Quarter: 2004Q4

REPORT INFORMATION
  Report Type: 
  Country: None (occurrence: None)
  Receive Date: 20041230
  Receipt Date: 20041215
  Transmission Date: 20050328
  Serious: Yes (Hospitalization)
  Sender: FDA-Public Use
  Company Number: 105701ISR

PATIENT
  Age: 38 Year
  Sex: Female

DRUGS (2)
  1. CARBOPLATIN [Suspect]
     Indication: OVARIAN CANCER
     Dosage: 600 MILLIGRAM
     Route: 042
     Dates: start: 20041115, end: 20041115
  2. TAXOL [Suspect]
     Dosage: 290 MILLIGRAM
     Route: 042
     Dates: start: 20041115, end: 20041115

REACTIONS (3)
  - DYSPNOEA [None]
  - FACE OEDEMA [None]
  - NAUSEA [None]
